FAERS Safety Report 7206117-0 (Version None)
Quarter: 2011Q1

REPORT INFORMATION
  Report Type: 
  Country: None (occurrence: None)
  Receive Date: 20110103
  Receipt Date: 20101228
  Transmission Date: 20110831
  Serious: Yes (Death)
  Sender: FDA-Public Use
  Company Number: JP-ASTELLAS-2010JP005872

PATIENT
  Sex: Male
  Weight: 54.3 kg

DRUGS (9)
  1. PREDONINE [Suspect]
     Dosage: UNK
     Route: 048
     Dates: end: 20030223
  2. PROGRAF [Suspect]
     Indication: PROPHYLAXIS AGAINST GRAFT VERSUS HOST DISEASE
     Dosage: UNK
     Route: 041
     Dates: start: 20021118, end: 20030122
  3. SOLU-CORTEF [Suspect]
     Dosage: 50 MG, QID
     Route: 042
     Dates: start: 20021205, end: 20021228
  4. PREDONINE [Suspect]
     Dosage: 90 MG, UNKNOWN/D
     Route: 048
     Dates: start: 20030108
  5. METHYLPREDNISOLONE [Suspect]
     Dosage: 0.5 G, BID
     Route: 042
     Dates: start: 20030224, end: 20030226
  6. PREDONINE [Suspect]
     Dosage: 25 MG, BID
     Route: 048
     Dates: start: 20021217, end: 20021224
  7. PREDONINE [Suspect]
     Dosage: 50 MG, BID
     Route: 048
     Dates: start: 20021225, end: 20030107
  8. GLUCOCORTICOIDS [Concomitant]
     Indication: ACUTE GRAFT VERSUS HOST DISEASE
     Route: 065
  9. METHOTREXATE [Concomitant]
     Indication: ALLOGENIC BONE MARROW TRANSPLANTATION THERAPY
     Route: 065

REACTIONS (4)
  - PNEUMONIA [None]
  - RESPIRATORY FAILURE [None]
  - CEREBRAL TOXOPLASMOSIS [None]
  - ACUTE GRAFT VERSUS HOST DISEASE IN SKIN [None]
